FAERS Safety Report 15716149 (Version 1)
Quarter: 2018Q4

REPORT INFORMATION
  Report Type: Spontaneous
  Country: US (occurrence: US)
  Receive Date: 20181213
  Receipt Date: 20181213
  Transmission Date: 20190205
  Serious: No
  Sender: FDA-Public Use
  Company Number: US-DRREDDYS-USA/USA/17/0095589

PATIENT
  Sex: Female
  Weight: 70 kg

DRUGS (3)
  1. OMEPRAZOLE. [Suspect]
     Active Substance: OMEPRAZOLE
     Indication: GASTROOESOPHAGEAL REFLUX DISEASE
     Route: 065
  2. ESTER C [Concomitant]
     Indication: IMMUNE SYSTEM DISORDER
     Route: 065
  3. OSTEO BI-FLEX [Concomitant]
     Active Substance: CHONDROITIN SULFATE A\GLUCOSAMINE
     Indication: ARTHROPATHY
     Route: 065

REACTIONS (3)
  - Product complaint [Unknown]
  - Extra dose administered [Unknown]
  - Eructation [Not Recovered/Not Resolved]
